FAERS Safety Report 8738403 (Version 6)
Quarter: 2013Q3

REPORT INFORMATION
  Report Type: Spontaneous
  Country: US (occurrence: US)
  Receive Date: 20120823
  Receipt Date: 20130916
  Transmission Date: 20140515
  Serious: Yes (Hospitalization, Disabling, Other)
  Sender: FDA-Public Use
  Company Number: US-009507513-1208USA005586

PATIENT
  Sex: Female
  Weight: 51.93 kg

DRUGS (3)
  1. FOSAMAX [Suspect]
     Indication: OSTEOPOROSIS
     Dosage: 70 MG, UNK
     Route: 048
     Dates: start: 200010
  2. FOSAMAX [Suspect]
     Dosage: 10 MG, QD
     Route: 048
     Dates: start: 20001026
  3. FOSAMAX PLUS D [Suspect]
     Indication: OSTEOPOROSIS
     Dosage: 70-5600 QW
     Route: 048
     Dates: start: 200605, end: 20110226

REACTIONS (22)
  - Femur fracture [Unknown]
  - Intramedullary rod insertion [Unknown]
  - Post procedural haemorrhage [Unknown]
  - Transfusion [Unknown]
  - Rib fracture [Unknown]
  - Chondroplasty [Unknown]
  - Chondromalacia [Unknown]
  - Synovectomy [Unknown]
  - Synovitis [Unknown]
  - Meniscus injury [Unknown]
  - Patellofemoral pain syndrome [Unknown]
  - Meniscus removal [Unknown]
  - Osteopenia [Unknown]
  - Osteopenia [Unknown]
  - Endodontic procedure [Unknown]
  - Drug intolerance [Unknown]
  - Psoriasis [Unknown]
  - Schistosomiasis [Unknown]
  - Dizziness [Unknown]
  - Nausea [Unknown]
  - Drug ineffective [Unknown]
  - Constipation [Not Recovered/Not Resolved]
